FAERS Safety Report 23903313 (Version 1)
Quarter: 2024Q2

REPORT INFORMATION
  Report Type: Spontaneous
  Country: US (occurrence: US)
  Receive Date: 20240527
  Receipt Date: 20240527
  Transmission Date: 20240716
  Serious: No
  Sender: FDA-Public Use
  Company Number: US-Accord-413027

PATIENT

DRUGS (2)
  1. METHOTREXATE [Suspect]
     Active Substance: METHOTREXATE
     Indication: Product used for unknown indication
  2. DIMETHYL FUMARATE [Concomitant]
     Active Substance: DIMETHYL FUMARATE

REACTIONS (1)
  - Nausea [Unknown]
